FAERS Safety Report 6272602-1 (Version None)
Quarter: 2009Q3

REPORT INFORMATION
  Report Type: 
  Country: None (occurrence: None)
  Receive Date: 20090717
  Receipt Date: 20090707
  Transmission Date: 20100115
  Serious: Yes (Other)
  Sender: FDA-Public Use
  Company Number: FR-ABBOTT-09P-056-0579448-00

PATIENT
  Sex: Male

DRUGS (5)
  1. ENANTONE LP 11.25 MG PREP INJECTION [Suspect]
     Indication: PROSTATE CANCER
     Route: 030
     Dates: start: 20070101
  2. BIPRETERAX [Concomitant]
     Indication: DRUG USE FOR UNKNOWN INDICATION
     Route: 048
  3. BIPRETERAX [Concomitant]
     Route: 048
  4. ZANIDIP [Concomitant]
     Indication: DRUG USE FOR UNKNOWN INDICATION
     Route: 048
  5. CASODEX [Concomitant]
     Indication: PROSTATE CANCER
     Route: 048

REACTIONS (1)
  - ANAPHYLACTOID REACTION [None]
